FAERS Safety Report 8456038-0 (Version None)
Quarter: 2012Q2

REPORT INFORMATION
  Report Type: 
  Country: None (occurrence: None)
  Receive Date: 20120323
  Receipt Date: 20110927
  Transmission Date: 20120825
  Serious: Yes (Hospitalization)
  Sender: FDA-Public Use
  Company Number: 163-21880-11082959

PATIENT
  Age: 85 Year
  Sex: Female

DRUGS (2)
  1. LENALIDOMIDE [Suspect]
     Indication: MULTIPLE MYELOMA
     Dosage: 10 MG, QD X 21 DAYS, 7 DAYS OFF, PO; 5 MG, QD #14, PO
     Route: 048
     Dates: start: 20091130
  2. LENALIDOMIDE [Suspect]
     Indication: MULTIPLE MYELOMA
     Dosage: 10 MG, QD X 21 DAYS, 7 DAYS OFF, PO; 5 MG, QD #14, PO
     Route: 048
     Dates: start: 20100202, end: 20110822

REACTIONS (1)
  - PNEUMONIA [None]
